FAERS Safety Report 8194976 (Version 3)
Quarter: 2013Q4

REPORT INFORMATION
  Report Type: Spontaneous
  Country: US (occurrence: None)
  Receive Date: 20111013
  Receipt Date: 20131129
  Transmission Date: 20140711
  Serious: Yes (Hospitalization, Other)
  Sender: FDA-Public Use
  Company Number: JPI-P-017369

PATIENT
  Age: 67 Year
  Sex: Male
  Weight: 95.9 kg

DRUGS (11)
  1. XYREM [Suspect]
     Indication: INSOMNIA
     Dosage: ORAL
     Route: 048
     Dates: start: 20080815
  2. HYDROCORTISONE [Concomitant]
  3. CLONAZEPAM [Concomitant]
  4. PANTOPRAZOLE [Concomitant]
  5. CARISOPRODOL [Concomitant]
  6. PROCET (HYDROCODONE BITARTRATE, PARACETAMOL) [Concomitant]
  7. ROSUVASTATIN [Concomitant]
  8. CLOPIDOGREL BISULFATE [Concomitant]
  9. CARVEDILOL (CARVEDILOL) [Concomitant]
  10. LISINOPRIL (LISINOPRIL) [Concomitant]
  11. NITROSTAT (GLYCERYL TRINITRATE) [Concomitant]

REACTIONS (7)
  - Myocardial infarction [None]
  - Decreased appetite [None]
  - Weight decreased [None]
  - Initial insomnia [None]
  - Night sweats [None]
  - Coronary arterial stent insertion [None]
  - Device occlusion [None]
